FAERS Safety Report 18791182 (Version 1)
Quarter: 2021Q1

REPORT INFORMATION
  Report Type: Report from Study
  Country: US (occurrence: US)
  Receive Date: 20210126
  Receipt Date: 20210126
  Transmission Date: 20210419
  Serious: Yes (Hospitalization)
  Sender: FDA-Public Use
  Company Number: US-TAKEDA-US202015016

PATIENT
  Sex: Male

DRUGS (4)
  1. TEDUGLUTIDE [Suspect]
     Active Substance: TEDUGLUTIDE
     Indication: SHORT-BOWEL SYNDROME
     Dosage: 2.91 MILLIGRAM, 1X/DAY:QD
     Route: 058
     Dates: start: 20191018
  2. TEDUGLUTIDE [Suspect]
     Active Substance: TEDUGLUTIDE
     Indication: SHORT-BOWEL SYNDROME
     Dosage: 2.91 MILLIGRAM, 1X/DAY:QD
     Route: 058
     Dates: start: 20191018
  3. TEDUGLUTIDE [Suspect]
     Active Substance: TEDUGLUTIDE
     Indication: SHORT-BOWEL SYNDROME
     Dosage: 2.91 MILLIGRAM, 1X/DAY:QD
     Route: 058
     Dates: start: 20191018
  4. TEDUGLUTIDE [Suspect]
     Active Substance: TEDUGLUTIDE
     Indication: SHORT-BOWEL SYNDROME
     Dosage: 2.91 MILLIGRAM, 1X/DAY:QD
     Route: 058
     Dates: start: 20191018

REACTIONS (2)
  - Hospitalisation [Unknown]
  - Needle issue [Unknown]
